FAERS Safety Report 4799978-6 (Version None)
Quarter: 2005Q4

REPORT INFORMATION
  Report Type: 
  Country: None (occurrence: None)
  Receive Date: 20051012
  Receipt Date: 20051012
  Transmission Date: 20060501
  Serious: Yes (Hospitalization)
  Sender: FDA-Public Use
  Company Number: None

PATIENT
  Age: 41 Year
  Sex: Male
  Weight: 81.6475 kg

DRUGS (3)
  1. SEROQUEL [Suspect]
     Indication: BIPOLAR DISORDER
     Dosage: 300MG BID PO
     Route: 048
     Dates: start: 20050624, end: 20050913
  2. SEROQUEL [Suspect]
     Indication: MANIA
     Dosage: 300MG BID PO
     Route: 048
     Dates: start: 20050624, end: 20050913
  3. SEROQUEL [Suspect]
     Indication: SCHIZOPHRENIA
     Dosage: 300MG BID PO
     Route: 048
     Dates: start: 20050624, end: 20050913

REACTIONS (5)
  - APHAGIA [None]
  - DRUG ABUSER [None]
  - INSOMNIA [None]
  - OLIGODIPSIA [None]
  - TREATMENT NONCOMPLIANCE [None]
